FAERS Safety Report 7583923-4 (Version None)
Quarter: 2011Q2

REPORT INFORMATION
  Report Type: 
  Country: None (occurrence: None)
  Receive Date: 20110630
  Receipt Date: 20110616
  Transmission Date: 20111010
  Serious: Yes (Hospitalization, Other)
  Sender: FDA-Public Use
  Company Number: US-BAYER-2011-029301

PATIENT
  Sex: Female
  Weight: 49 kg

DRUGS (1)
  1. MIRENA [Suspect]
     Indication: CONTRACEPTION
     Dosage: 20 ?G, CONT
     Route: 015
     Dates: start: 20100910, end: 20110302

REACTIONS (13)
  - PYREXIA [None]
  - MALAISE [None]
  - DISCOMFORT [None]
  - PELVIC ABSCESS [None]
  - DIARRHOEA [None]
  - STREPTOCOCCUS TEST POSITIVE [None]
  - WHITE BLOOD CELL COUNT INCREASED [None]
  - UTERINE PERFORATION [None]
  - PELVIC INFLAMMATORY DISEASE [None]
  - HEADACHE [None]
  - ABDOMINAL PAIN [None]
  - VOMITING [None]
  - NAUSEA [None]
